FAERS Safety Report 8976076 (Version 2)
Quarter: 2013Q4

REPORT INFORMATION
  Report Type: Spontaneous
  Country: US (occurrence: US)
  Receive Date: 20121219
  Receipt Date: 20131003
  Transmission Date: 20140711
  Serious: Yes (Other)
  Sender: FDA-Public Use
  Company Number: US-AMGEN-USASP2012063372

PATIENT
  Age: 67 Year
  Sex: Female

DRUGS (9)
  1. PROLIA [Suspect]
     Indication: OSTEOPOROSIS POSTMENOPAUSAL
     Dosage: 60 MG, Q6MO
     Route: 065
     Dates: start: 20120214
  2. PREDNISONE [Concomitant]
     Dosage: UNK
  3. AZITHROMYCIN [Concomitant]
     Dosage: UNK
  4. ARMOUR THYROID [Concomitant]
     Dosage: UNK
  5. ZANTAC [Concomitant]
     Dosage: UNK
  6. TUMS                               /00193601/ [Concomitant]
     Dosage: UNK
  7. MULTIVITAMIN                       /00097801/ [Concomitant]
     Dosage: UNK
  8. VITAMIN D                          /00107901/ [Concomitant]
     Dosage: UNK
  9. JARRO DOPHILUS [Concomitant]
     Dosage: UNK

REACTIONS (4)
  - Candida infection [Unknown]
  - Pyrexia [Unknown]
  - Fatigue [Unknown]
  - Multimorbidity [Unknown]
